FAERS Safety Report 7688742-6 (Version None)
Quarter: 2011Q3

REPORT INFORMATION
  Report Type: 
  Country: None (occurrence: None)
  Receive Date: 20110817
  Receipt Date: 20110812
  Transmission Date: 20111222
  Serious: Yes (Other)
  Sender: FDA-Public Use
  Company Number: US-ROXANE LABORATORIES, INC.-2010-RO-01717RO

PATIENT
  Age: 29 Year
  Sex: Female

DRUGS (7)
  1. FLUCONAZOLE [Suspect]
     Indication: MENINGITIS CRYPTOCOCCAL
     Dosage: 400 MG
     Route: 048
  2. AZITHROMYCIN [Suspect]
  3. RITONAVIR [Suspect]
  4. ATOVAQUONE [Suspect]
  5. EMTRICITABINE/TENOFOVIR DISOPROXIL FUMARATE [Suspect]
  6. DARUNAVIR [Suspect]
  7. ETHAMBUTOL HYDROCHLORIDE [Suspect]

REACTIONS (1)
  - DRUG HYPERSENSITIVITY [None]
